FAERS Safety Report 9033932 (Version 1)
Quarter: 2013Q1

REPORT INFORMATION
  Report Type: Spontaneous
  Country: US (occurrence: US)
  Receive Date: 20130128
  Receipt Date: 20130128
  Transmission Date: 20140127
  Serious: Yes (Death)
  Sender: FDA-Public Use
  Company Number: US-AMGEN-USASP2012068392

PATIENT
  Age: 65 Year
  Sex: Female

DRUGS (23)
  1. ENBREL [Suspect]
     Indication: RHEUMATOID ARTHRITIS
     Dosage: 50 MG, QWK
     Route: 058
  2. METHOTREXATE [Concomitant]
     Dosage: 1 G, UNK
  3. ASPIRIN BUFFERED [Concomitant]
     Dosage: 325 MG, UNK
  4. SERTRALINE                         /01011402/ [Concomitant]
     Dosage: 100 MG, UNK
  5. LYRICA [Concomitant]
     Dosage: 25 MG, UNK
  6. NABUMETONE [Concomitant]
     Dosage: 500 MG, UNK
  7. METOPROLOL TARTRATE [Concomitant]
     Dosage: 25 MG, UNK
  8. NASONEX [Concomitant]
     Dosage: 50 MCG/AC
  9. SULFASALAZIN [Concomitant]
     Dosage: 500 MG, UNK
  10. LISINOPRIL [Concomitant]
     Dosage: 20 MG, UNK
  11. METFORMIN [Concomitant]
     Dosage: 1000 MG, UNK
  12. GLIPIZIDE [Concomitant]
     Dosage: 5 MG, UNK
  13. LIPITOR [Concomitant]
     Dosage: 20 MG, UNK
  14. PROVENTIL                          /00139501/ [Concomitant]
     Dosage: 0.083 %, UNK
  15. MULTIVITAMINS, PLAIN [Concomitant]
     Dosage: UNK
  16. MINERALS NOS [Concomitant]
     Dosage: UNK
  17. HYDROCODONE W/APAP                 /01554201/ [Concomitant]
     Dosage: 5-325MG
  18. FLOVENT [Concomitant]
     Dosage: 110 MUG, UNK
  19. CALCARB [Concomitant]
     Dosage: 600 UNK, UNK
  20. FOLIC ACID [Concomitant]
     Dosage: 1 MG, UNK
  21. LANTUS [Concomitant]
     Dosage: 100/ML
  22. NOVOLOG [Concomitant]
     Dosage: 100/ML
  23. OMEPRAZOLE                         /00661202/ [Concomitant]
     Dosage: 20 MG, UNK

REACTIONS (1)
  - Death [Fatal]
